FAERS Safety Report 5324614-X (Version None)
Quarter: 2007Q2

REPORT INFORMATION
  Report Type: 
  Country: None (occurrence: None)
  Receive Date: 20070508
  Receipt Date: 20070427
  Transmission Date: 20071010
  Serious: Yes (Hospitalization)
  Sender: FDA-Public Use
  Company Number: 805#1#2007-00048

PATIENT
  Age: 83 Year
  Sex: Female

DRUGS (2)
  1. ALPROSTADIL [Suspect]
     Indication: ARTERIOSCLEROSIS OBLITERANS
     Dosage: SEE IMAGE
     Route: 041
     Dates: start: 20070418, end: 20070424
  2. ALPROSTADIL [Suspect]
     Indication: ARTERIOSCLEROSIS OBLITERANS
     Dosage: SEE IMAGE
     Route: 041
     Dates: start: 20070425, end: 20070426

REACTIONS (1)
  - RASH GENERALISED [None]
